FAERS Safety Report 8427138-6 (Version None)
Quarter: 2012Q2

REPORT INFORMATION
  Report Type: 
  Country: None (occurrence: None)
  Receive Date: 20120601
  Receipt Date: 20120523
  Transmission Date: 20120825
  Serious: Yes (Life-Threatening)
  Sender: FDA-Public Use
  Company Number: 2012SP028924

PATIENT
  Sex: Male

DRUGS (1)
  1. NOXAFIL [Suspect]
     Indication: PROPHYLAXIS

REACTIONS (2)
  - DRUG LEVEL CHANGED [None]
  - FUSARIUM INFECTION [None]
